FAERS Safety Report 7517868-2 (Version None)
Quarter: 2011Q2

REPORT INFORMATION
  Report Type: 
  Country: None (occurrence: None)
  Receive Date: 20110526
  Receipt Date: 20110526
  Transmission Date: 20111010
  Serious: No
  Sender: FDA-Public Use
  Company Number: None

PATIENT
  Age: 58 Year
  Sex: Female
  Weight: 97.977 kg

DRUGS (2)
  1. PRAVACHOL [Suspect]
     Indication: HYPERTENSION
     Dosage: ONE PO QD
     Route: 048
  2. HYZAAR [Suspect]
     Indication: HYPERCHOLESTEROLAEMIA
     Dosage: ONE PO QD
     Route: 048

REACTIONS (4)
  - ASTHENIA [None]
  - SOMNOLENCE [None]
  - PAIN IN EXTREMITY [None]
  - SLUGGISHNESS [None]
